FAERS Safety Report 13089920 (Version 1)
Quarter: 2017Q1

REPORT INFORMATION
  Report Type: Spontaneous
  Country: US (occurrence: US)
  Receive Date: 20170105
  Receipt Date: 20170105
  Transmission Date: 20170428
  Serious: Yes (Other)
  Sender: FDA-Public Use
  Company Number: US-BAUSCH-BL-2017-000292

PATIENT
  Age: 36 Year
  Sex: Male

DRUGS (1)
  1. RUCONEST [Suspect]
     Active Substance: HUMAN C1-ESTERASE INHIBITOR
     Indication: COMPLEMENT DEFICIENCY DISEASE
     Dosage: AS NEEDED
     Route: 042
     Dates: start: 201512, end: 201512

REACTIONS (2)
  - Genital swelling [Not Recovered/Not Resolved]
  - Vasectomy [Unknown]

NARRATIVE: CASE EVENT DATE: 20161223
